FAERS Safety Report 6577411-1 (Version None)
Quarter: 2010Q1

REPORT INFORMATION
  Report Type: 
  Country: None (occurrence: None)
  Receive Date: 20100211
  Receipt Date: 20100201
  Transmission Date: 20100710
  Serious: Yes (Life-Threatening, Hospitalization)
  Sender: FDA-Public Use
  Company Number: PH-JNJFOC-20081201068

PATIENT
  Sex: Female
  Weight: 48 kg

DRUGS (34)
  1. GOLIMUMAB [Suspect]
     Indication: RHEUMATOID ARTHRITIS
     Route: 058
  2. GOLIMUMAB [Suspect]
     Route: 058
  3. GOLIMUMAB [Suspect]
     Route: 058
  4. GOLIMUMAB [Suspect]
     Route: 058
  5. GOLIMUMAB [Suspect]
     Route: 058
  6. GOLIMUMAB [Suspect]
     Route: 058
  7. GOLIMUMAB [Suspect]
     Route: 058
  8. GOLIMUMAB [Suspect]
     Route: 058
  9. PLACEBO [Suspect]
     Indication: RHEUMATOID ARTHRITIS
     Route: 058
  10. PLACEBO [Suspect]
     Route: 058
  11. PLACEBO [Suspect]
     Route: 058
  12. PLACEBO [Suspect]
     Route: 058
  13. PLACEBO [Suspect]
     Route: 058
  14. PLACEBO [Suspect]
     Route: 058
  15. PLACEBO [Suspect]
     Route: 058
  16. PLACEBO [Suspect]
     Route: 058
  17. PLACEBO [Suspect]
     Route: 058
  18. PLACEBO [Suspect]
     Route: 058
  19. PLACEBO [Suspect]
     Route: 058
  20. PLACEBO [Suspect]
     Route: 058
  21. PLACEBO [Suspect]
     Route: 058
  22. PLACEBO [Suspect]
     Route: 058
  23. METHOTREXATE [Suspect]
     Indication: RHEUMATOID ARTHRITIS
     Route: 048
  24. METHOTREXATE [Suspect]
     Route: 048
  25. METHOTREXATE [Suspect]
     Route: 048
  26. METHOTREXATE [Suspect]
     Route: 048
  27. METHOTREXATE [Suspect]
     Route: 048
  28. METHOTREXATE [Suspect]
     Route: 048
  29. NEUROBION [Concomitant]
     Route: 048
  30. CALTRATE PLUS [Concomitant]
     Route: 048
  31. PREDNISONE [Concomitant]
     Route: 048
  32. ISONIAZID [Concomitant]
     Route: 048
  33. FOLIC ACID [Concomitant]
     Route: 048
  34. MOBIC [Concomitant]
     Route: 048

REACTIONS (5)
  - CATARACT [None]
  - CHOLELITHIASIS [None]
  - JAUNDICE CHOLESTATIC [None]
  - PNEUMONIA [None]
  - SEPSIS [None]
